FAERS Safety Report 12713823 (Version 2)
Quarter: 2016Q3

REPORT INFORMATION
  Report Type: Report from Study
  Country: CA (occurrence: CA)
  Receive Date: 20160905
  Receipt Date: 20160920
  Transmission Date: 20161109
  Serious: Yes (Other)
  Sender: FDA-Public Use
  Company Number: CA-ROCHE-1822917

PATIENT
  Age: 57 Year
  Sex: Female

DRUGS (3)
  1. ACTEMRA [Suspect]
     Active Substance: TOCILIZUMAB
     Indication: RHEUMATOID ARTHRITIS
     Route: 058
     Dates: start: 20160825, end: 20160826
  2. PREDNISONE. [Concomitant]
     Active Substance: PREDNISONE
     Indication: RHEUMATOID ARTHRITIS
     Route: 048
  3. DESICCATED THYROID [Concomitant]

REACTIONS (9)
  - Hypoaesthesia oral [Recovered/Resolved]
  - Heart rate decreased [Recovered/Resolved]
  - Peripheral swelling [Recovering/Resolving]
  - Stomatitis [Recovered/Resolved]
  - Hypopnoea [Recovered/Resolved]
  - Pallor [Recovered/Resolved]
  - Hypersensitivity [Unknown]
  - Abasia [Unknown]
  - Oral discomfort [Unknown]

NARRATIVE: CASE EVENT DATE: 20160826
